FAERS Safety Report 4760357-9 (Version None)
Quarter: 2005Q3

REPORT INFORMATION
  Report Type: 
  Country: None (occurrence: None)
  Receive Date: 20050902
  Receipt Date: 20050812
  Transmission Date: 20060218
  Serious: Yes (Hospitalization)
  Sender: FDA-Public Use
  Company Number: 2005SE04639

PATIENT
  Age: 24502 Day
  Sex: Female

DRUGS (5)
  1. BLOPRESS [Suspect]
     Indication: HYPERTENSION
     Route: 048
     Dates: start: 20001201, end: 20001214
  2. BLOPRESS [Suspect]
     Route: 048
     Dates: start: 20001215, end: 20020101
  3. BLOPRESS [Suspect]
     Route: 048
     Dates: start: 20020101
  4. NORVASC [Concomitant]
     Route: 048
     Dates: start: 20001124, end: 20020101
  5. AMLODIN [Concomitant]
     Route: 048
     Dates: start: 20020101

REACTIONS (2)
  - INTERSTITIAL LUNG DISEASE [None]
  - PULMONARY FIBROSIS [None]
